FAERS Safety Report 25806763 (Version 2)
Quarter: 2025Q3

REPORT INFORMATION
  Report Type: Spontaneous
  Country: CN (occurrence: CN)
  Receive Date: 20250916
  Receipt Date: 20250927
  Transmission Date: 20251021
  Serious: Yes (Hospitalization, Other)
  Sender: SANOFI AVENTIS
  Company Number: CN-MLMSERVICE-20250904-PI632117-00306-1

PATIENT
  Age: 26 Year
  Sex: Male

DRUGS (10)
  1. PREDNISONE [Interacting]
     Active Substance: PREDNISONE
     Indication: Nephrotic syndrome
     Dosage: 60 MG, QD
     Dates: start: 2017, end: 2017
  2. PREDNISONE [Interacting]
     Active Substance: PREDNISONE
     Dosage: 30 MG, QD (DECREASED BY 5 MG PER MONTH TO) BY HIMSELF
     Dates: start: 2017
  3. PREDNISONE [Interacting]
     Active Substance: PREDNISONE
     Dosage: 50 MG, QD (1 MONTH OF TREATMENT)
     Dates: start: 2019, end: 2019
  4. RIFAMPIN [Interacting]
     Active Substance: RIFAMPIN
     Indication: Tuberculous pleurisy
     Dosage: 0.45 G, QD
     Dates: start: 2018, end: 201903
  5. TACROLIMUS [Interacting]
     Active Substance: TACROLIMUS
     Indication: Nephrotic syndrome
     Dosage: 1 MG, Q12H
     Dates: start: 2019
  6. ISONIAZID [Concomitant]
     Active Substance: ISONIAZID
     Indication: Tuberculous pleurisy
     Dosage: 0.4 G, QD
     Dates: start: 2018
  7. METHYLPREDNISOLONE [Concomitant]
     Active Substance: METHYLPREDNISOLONE
     Indication: Nephrotic syndrome
     Dosage: 48 MG, QD
     Dates: start: 2019, end: 2019
  8. METHYLPREDNISOLONE [Concomitant]
     Active Substance: METHYLPREDNISOLONE
     Dosage: 40 MG, QD
     Dates: start: 2019, end: 2019
  9. ETHAMBUTOL [Concomitant]
     Active Substance: ETHAMBUTOL HYDROCHLORIDE
     Indication: Tuberculous pleurisy
     Dosage: 0.75 G, QD
  10. PYRAZINAMIDE [Concomitant]
     Active Substance: PYRAZINAMIDE
     Indication: Tuberculous pleurisy
     Dosage: 0.5 G, TID

REACTIONS (3)
  - Nephrotic syndrome [Recovered/Resolved]
  - Drug interaction [Recovered/Resolved]
  - Drug ineffective [Recovered/Resolved]
